FAERS Safety Report 5193084-7 (Version None)
Quarter: 2006Q4

REPORT INFORMATION
  Report Type: 
  Country: None (occurrence: None)
  Receive Date: 20061228
  Receipt Date: 20060413
  Transmission Date: 20070319
  Serious: No
  Sender: FDA-Public Use
  Company Number: US-GLAXOSMITHKLINE-A0601669A

PATIENT
  Age: 75 Year
  Sex: Male
  Weight: 110.5 kg

DRUGS (19)
  1. AVODART [Suspect]
     Indication: BENIGN PROSTATIC HYPERPLASIA
     Dosage: 1CAP PER DAY
     Route: 048
     Dates: start: 20060301, end: 20060401
  2. LISINOPRIL [Concomitant]
  3. LANTUS [Concomitant]
  4. ZOLOFT [Concomitant]
  5. SEREVENT [Concomitant]
  6. ALBUTEROL [Concomitant]
  7. ZOCOR [Concomitant]
  8. FUROSEMIDE [Concomitant]
  9. NEURONTIN [Concomitant]
  10. RISPERDAL [Concomitant]
  11. NITROGLYCERIN SL [Concomitant]
  12. NOVOLIN [Concomitant]
  13. PRILOSEC [Concomitant]
  14. SANCTURA [Concomitant]
  15. FLONASE [Concomitant]
  16. NOVO PENMIX [Concomitant]
  17. NOVOLOG [Concomitant]
  18. TRAVOPROST [Concomitant]
  19. LORATADINE [Concomitant]

REACTIONS (2)
  - BREAST TENDERNESS [None]
  - GYNAECOMASTIA [None]
